FAERS Safety Report 14719928 (Version 2)
Quarter: 2018Q2

REPORT INFORMATION
  Report Type: Spontaneous
  Country: CA (occurrence: CA)
  Receive Date: 20180405
  Receipt Date: 20180413
  Transmission Date: 20180711
  Serious: Yes (Hospitalization, Other)
  Sender: FDA-Public Use
  Company Number: CA-TEVA-2018-CA-877766

PATIENT
  Sex: Female

DRUGS (2)
  1. CYMBALTA [Concomitant]
     Active Substance: DULOXETINE HYDROCHLORIDE
     Dosage: SHE HAD BEEN WEANING OFF CYMBALTA FOR OVER 5-6 MONTHS
  2. NOVO-FLUOXETINE [Suspect]
     Active Substance: FLUOXETINE HYDROCHLORIDE
     Indication: WITHDRAWAL SYNDROME
     Dosage: 10 MILLIGRAM DAILY;
     Route: 048
     Dates: start: 20180129, end: 20180317

REACTIONS (18)
  - Decreased appetite [Unknown]
  - Myalgia [Not Recovered/Not Resolved]
  - Psychiatric symptom [Unknown]
  - Bronchial disorder [Unknown]
  - Musculoskeletal pain [Unknown]
  - Mania [Recovered/Resolved]
  - Hypoaesthesia [Unknown]
  - Abdominal discomfort [Unknown]
  - Chest pain [Not Recovered/Not Resolved]
  - Abdominal pain upper [Unknown]
  - Dyspnoea [Recovering/Resolving]
  - Crying [Recovered/Resolved]
  - Anxiety [Recovered/Resolved]
  - Malaise [Unknown]
  - Pleural effusion [Unknown]
  - Gastrointestinal disorder [Unknown]
  - Abdominal distension [Unknown]
  - Respiratory disorder [Unknown]

NARRATIVE: CASE EVENT DATE: 2018
